FAERS Safety Report 9143860 (Version 1)
Quarter: 2013Q1

REPORT INFORMATION
  Report Type: Spontaneous
  Country: CH (occurrence: CH)
  Receive Date: 20130306
  Receipt Date: 20130306
  Transmission Date: 20140127
  Serious: Yes (Hospitalization)
  Sender: FDA-Public Use
  Company Number: PHHY2013CH020718

PATIENT
  Age: 80 Year
  Sex: Female

DRUGS (9)
  1. DIGOXIN [Suspect]
     Dosage: UNK UKN, UNK
     Route: 042
     Dates: start: 20130130, end: 20130203
  2. CORDARONE [Suspect]
     Dosage: UNK UKN, UNK
     Route: 048
     Dates: start: 20130130, end: 20130203
  3. SINTROM [Concomitant]
     Dosage: 1 DF, PRN
     Route: 048
  4. MIMPARA [Concomitant]
     Dosage: 60 MG, QD
     Route: 048
  5. CALCIUM ACETATE [Concomitant]
     Dosage: 3 DF (500 MG, 3 DF PER 2 DAYS)
  6. RENAGEL [Concomitant]
     Dosage: 2 DF (800 MG 2 DF PER 3 DAYS)
     Route: 048
  7. SAROTEN RETARD [Concomitant]
     Dosage: 25 MG, QD
     Route: 048
  8. PANTOZOL [Concomitant]
     Dosage: 20 MG, QD
     Route: 048
  9. HALCION [Concomitant]
     Dosage: 0.25 MG, QD

REACTIONS (4)
  - Atrioventricular block [Recovered/Resolved]
  - Dyspnoea [Recovered/Resolved]
  - Drug interaction [None]
  - Toxicity to various agents [None]
